FAERS Safety Report 24340987 (Version 1)
Quarter: 2024Q3

REPORT INFORMATION
  Report Type: Report from Study
  Country: CN (occurrence: CN)
  Receive Date: 20240919
  Receipt Date: 20240919
  Transmission Date: 20241016
  Serious: Yes (Hospitalization)
  Sender: EISAI
  Company Number: CN-Eisai-EC-2024-174187

PATIENT
  Age: 64 Year
  Sex: Male
  Weight: 57 kg

DRUGS (20)
  1. LENVATINIB [Suspect]
     Active Substance: LENVATINIB
     Indication: Hepatocellular carcinoma
     Dosage: FREQUENCY : UNKNOWN
     Route: 048
     Dates: start: 20230927
  2. LENVATINIB [Suspect]
     Active Substance: LENVATINIB
     Dosage: FREQUENCY : UNKNOWN
     Route: 048
     Dates: start: 20231017
  3. LENVATINIB [Suspect]
     Active Substance: LENVATINIB
     Dosage: FREQUENCY : UNKNOWN
     Route: 048
     Dates: start: 20231118
  4. LENVATINIB [Suspect]
     Active Substance: LENVATINIB
     Dosage: FREQUENCY : UNKNOWN
     Route: 048
     Dates: start: 20231208
  5. LENVATINIB [Suspect]
     Active Substance: LENVATINIB
     Dosage: FREQUENCY : UNKNOWN
     Route: 048
     Dates: start: 20231229
  6. LENVATINIB [Suspect]
     Active Substance: LENVATINIB
     Dosage: FREQUENCY : UNKNOWN
     Route: 048
     Dates: start: 20240119
  7. LENVATINIB [Suspect]
     Active Substance: LENVATINIB
     Dosage: FREQUENCY : UNKNOWN
     Route: 048
     Dates: start: 20240207
  8. VOLRUSTOMIG [Suspect]
     Active Substance: VOLRUSTOMIG
     Indication: Hepatocellular carcinoma
     Route: 042
     Dates: start: 20231017
  9. VOLRUSTOMIG [Suspect]
     Active Substance: VOLRUSTOMIG
     Route: 042
     Dates: start: 20231117
  10. VOLRUSTOMIG [Suspect]
     Active Substance: VOLRUSTOMIG
     Route: 042
     Dates: start: 20230927
  11. 2-DIPHENYLMETHOXYETHYLETHYL [Concomitant]
     Indication: Adverse event
     Dates: start: 20231128
  12. ACTIFED COMPOUND [Concomitant]
     Dates: start: 20231128, end: 20240415
  13. PC PHOSPHATIDYLCHOLINE [Concomitant]
     Indication: Prophylaxis
     Dates: start: 20231117, end: 20240415
  14. CALCIUM CARBONATE\CHOLECALCIFEROL [Concomitant]
     Active Substance: CALCIUM CARBONATE\CHOLECALCIFEROL
     Indication: Adverse event
     Dates: start: 20231111
  15. ACT PREGABALIN [Concomitant]
     Dates: start: 20231109
  16. BI TOFACITINIB [Concomitant]
     Indication: Adverse event
     Dates: start: 20231102
  17. LEVOTHYROXINE SODIUM [Concomitant]
     Active Substance: LEVOTHYROXINE SODIUM
     Dates: start: 20231101
  18. AG TENOFOVIR [Concomitant]
     Dates: start: 20230924
  19. ENTECAVIR [Concomitant]
     Active Substance: ENTECAVIR
     Indication: Hepatitis B
     Dates: start: 20230924
  20. TENOFOVIR ALAFENOL FUMARATE [Concomitant]
     Indication: Hepatitis B

REACTIONS (2)
  - Immune-mediated neuropathy [Recovering/Resolving]
  - Enteritis [Not Recovered/Not Resolved]

NARRATIVE: CASE EVENT DATE: 20231025
